FAERS Safety Report 21957963 (Version 3)
Quarter: 2023Q2

REPORT INFORMATION
  Report Type: Report from Study
  Country: US (occurrence: US)
  Receive Date: 20230206
  Receipt Date: 20230403
  Transmission Date: 20230721
  Serious: Yes (Death, Hospitalization, Other)
  Sender: FDA-Public Use
  Company Number: US-BAUSCH-BL-2023-001840

PATIENT
  Age: 79 Year
  Sex: Male

DRUGS (1)
  1. XIFAXAN [Suspect]
     Active Substance: RIFAXIMIN
     Indication: Hepatic encephalopathy
     Route: 048

REACTIONS (6)
  - Death [Fatal]
  - Hypotension [Unknown]
  - Haemorrhage [Unknown]
  - Dizziness [Unknown]
  - Ascites [Unknown]
  - Intentional product use issue [Unknown]
